FAERS Safety Report 13028291 (Version 1)
Quarter: 2016Q4

REPORT INFORMATION
  Report Type: Spontaneous
  Country: US (occurrence: US)
  Receive Date: 20161214
  Receipt Date: 20161214
  Transmission Date: 20170207
  Serious: No
  Sender: FDA-Public Use
  Company Number: US-LPDUSPRD-20160559

PATIENT
  Age: 92 Year
  Sex: Female

DRUGS (1)
  1. VENOFER [Suspect]
     Active Substance: IRON SUCROSE
     Dosage: 300 MG IN 100 ML NSS
     Route: 042

REACTIONS (4)
  - Extravasation [Unknown]
  - Skin discolouration [Unknown]
  - Paraesthesia [Unknown]
  - Pain [Unknown]
